FAERS Safety Report 10936773 (Version 2)
Quarter: 2015Q2

REPORT INFORMATION
  Report Type: Spontaneous
  Country: US (occurrence: US)
  Receive Date: 20150321
  Receipt Date: 20150525
  Transmission Date: 20150821
  Serious: No
  Sender: FDA-Public Use
  Company Number: US-JNJFOC-20131212354

PATIENT

DRUGS (7)
  1. TOPIRAMATE. [Suspect]
     Active Substance: TOPIRAMATE
     Indication: DRUG DEPENDENCE
     Dosage: FOR 5 TO 6 WEEK (1 X 100 MG + 2 X 25 MG) IN THE MORNING AND NIGHT TIME
     Route: 048
  2. TOPIRAMATE. [Suspect]
     Active Substance: TOPIRAMATE
     Indication: DRUG DEPENDENCE
     Dosage: FOR 3 TO 4 WEEK (1 X 100 MG) IN THE MORNING AND NIGHT TIME
     Route: 048
  3. TOPIRAMATE. [Suspect]
     Active Substance: TOPIRAMATE
     Indication: DRUG DEPENDENCE
     Dosage: FOR 1 TO 2 WEEK (2 X 25 MG IN THE MORNING AND NIGHT TIME)
     Route: 048
  4. TOPIRAMATE. [Suspect]
     Active Substance: TOPIRAMATE
     Indication: DRUG DEPENDENCE
     Dosage: FOR 0 TO 1 WEEK (25 MG IN THE MORNING AND NIGHT TIME)
     Route: 048
  5. TOPIRAMATE. [Suspect]
     Active Substance: TOPIRAMATE
     Indication: DRUG DEPENDENCE
     Dosage: FOR 4 TO 5 WEEK (1 X 100 MG + 1 X 25 MG) IN THE MORNING AND NIGHT TIME
     Route: 048
  6. TOPIRAMATE. [Suspect]
     Active Substance: TOPIRAMATE
     Indication: DRUG DEPENDENCE
     Dosage: FOR 2 TO 3 WEEK (1 X 25 MG + 1 X 50 MG) IN THE MORNING AND NIGHT TIME
     Route: 048
  7. TOPIRAMATE. [Suspect]
     Active Substance: TOPIRAMATE
     Indication: DRUG DEPENDENCE
     Dosage: FOR 6 TO 12 WEEK (1 X 100 MG + 2 X 25 MG) IN THE MORNING AND NIGHT
     Route: 048

REACTIONS (9)
  - Fatigue [Unknown]
  - Paraesthesia [Unknown]
  - Weight decreased [Unknown]
  - Diarrhoea [Unknown]
  - Therapeutic response unexpected [Unknown]
  - Headache [Unknown]
  - Dysgeusia [Unknown]
  - Disturbance in attention [Unknown]
  - Product use issue [Unknown]
